FAERS Safety Report 19861072 (Version 1)
Quarter: 2021Q3

REPORT INFORMATION
  Report Type: Other
  Country: IL (occurrence: IL)
  Receive Date: 20210921
  Receipt Date: 20210921
  Transmission Date: 20211014
  Serious: Yes (Other)
  Sender: FDA-Public Use
  Company Number: IL-ROCHE-2652512

PATIENT
  Age: 20 Year
  Sex: Female

DRUGS (1)
  1. OCREVUS [Suspect]
     Active Substance: OCRELIZUMAB
     Indication: RELAPSING-REMITTING MULTIPLE SCLEROSIS
     Dosage: FIRST TREATMENT
     Route: 042
     Dates: start: 20200720

REACTIONS (9)
  - Headache [Recovering/Resolving]
  - Cough [Unknown]
  - Abdominal pain upper [Unknown]
  - Dyspepsia [Unknown]
  - Dry throat [Unknown]
  - Pyrexia [Unknown]
  - Malaise [Recovering/Resolving]
  - Erythema [Recovering/Resolving]
  - Pneumonia [Unknown]

NARRATIVE: CASE EVENT DATE: 20200728
